FAERS Safety Report 7213181-1 (Version None)
Quarter: 2011Q1

REPORT INFORMATION
  Report Type: 
  Country: None (occurrence: None)
  Receive Date: 20110106
  Receipt Date: 20101230
  Transmission Date: 20110831
  Serious: Yes (Death, Hospitalization)
  Sender: FDA-Public Use
  Company Number: FR-SP-2010-07173

PATIENT
  Sex: Male

DRUGS (1)
  1. IMMUCYST [Suspect]
     Indication: BLADDER TRANSITIONAL CELL CARCINOMA
     Route: 043
     Dates: start: 20090401, end: 20090401

REACTIONS (8)
  - PYREXIA [None]
  - ABNORMAL LOSS OF WEIGHT [None]
  - CARDIAC MURMUR [None]
  - DUODENAL ULCER [None]
  - DISSEMINATED TUBERCULOSIS [None]
  - HEPATIC FAILURE [None]
  - GENERAL PHYSICAL HEALTH DETERIORATION [None]
  - RENAL FAILURE [None]
